FAERS Safety Report 12627957 (Version 2)
Quarter: 2016Q3

REPORT INFORMATION
  Report Type: Spontaneous
  Country: US (occurrence: US)
  Receive Date: 20160807
  Receipt Date: 20160814
  Transmission Date: 20161109
  Serious: Yes (Other)
  Sender: FDA-Public Use
  Company Number: US-BEH-2016072007

PATIENT
  Age: 75 Year
  Sex: Female
  Weight: 63.49 kg

DRUGS (25)
  1. COMBIVENT [Concomitant]
     Active Substance: ALBUTEROL SULFATE\IPRATROPIUM BROMIDE
  2. DIGOXIN. [Concomitant]
     Active Substance: DIGOXIN
  3. LMX                                /00033401/ [Concomitant]
  4. KLOR-CON [Concomitant]
     Active Substance: POTASSIUM CHLORIDE
  5. BROVANA [Concomitant]
     Active Substance: ARFORMOTEROL TARTRATE
  6. SPIRIVA [Concomitant]
     Active Substance: TIOTROPIUM BROMIDE MONOHYDRATE
  7. MUCINEX [Concomitant]
     Active Substance: GUAIFENESIN
  8. SYMBICORT [Concomitant]
     Active Substance: BUDESONIDE\FORMOTEROL FUMARATE DIHYDRATE
  9. SODIUM CHLORIDE. [Concomitant]
     Active Substance: SODIUM CHLORIDE
  10. PHENAZOPYRIDINE. [Concomitant]
     Active Substance: PHENAZOPYRIDINE
  11. ZEMAIRA [Suspect]
     Active Substance: .ALPHA.1-PROTEINASE INHIBITOR HUMAN
     Indication: ALPHA-1 ANTI-TRYPSIN DEFICIENCY
     Dosage: 60 MG/KG, QW (961 MG VIALS)
     Route: 042
  12. COUMADIN [Concomitant]
     Active Substance: WARFARIN SODIUM
  13. TRAMADOL. [Concomitant]
     Active Substance: TRAMADOL
  14. PROAIR HFA [Concomitant]
     Active Substance: ALBUTEROL SULFATE
  15. POTASSIUM [Concomitant]
     Active Substance: POTASSIUM
  16. METOPROLOL. [Concomitant]
     Active Substance: METOPROLOL
  17. KEFLEX [Concomitant]
     Active Substance: CEPHALEXIN
  18. PREDNISONE. [Concomitant]
     Active Substance: PREDNISONE
  19. LASIX [Concomitant]
     Active Substance: FUROSEMIDE
  20. METFORMIN [Concomitant]
     Active Substance: METFORMIN HYDROCHLORIDE
  21. DIPHENHYDRAMINE. [Concomitant]
     Active Substance: DIPHENHYDRAMINE
  22. CARDIZEM [Concomitant]
     Active Substance: DILTIAZEM HYDROCHLORIDE
  23. BUDESONIDE. [Concomitant]
     Active Substance: BUDESONIDE
  24. TUDORZA PRESSAIR [Concomitant]
     Active Substance: ACLIDINIUM BROMIDE
  25. PRAVASTATIN. [Concomitant]
     Active Substance: PRAVASTATIN

REACTIONS (1)
  - Bladder operation [Recovered/Resolved]

NARRATIVE: CASE EVENT DATE: 201602
